FAERS Safety Report 8804251 (Version 3)
Quarter: 2012Q4

REPORT INFORMATION
  Report Type: 
  Country: US (occurrence: US)
  Receive Date: 20120924
  Receipt Date: 20121109
  Transmission Date: 20130627
  Serious: No
  Sender: FDA-Public Use
  Company Number: US-009507513-1209USA005343

PATIENT
  Age: 59 Year
  Sex: Female

DRUGS (4)
  1. PEG-INTRON [Suspect]
     Indication: HEPATITIS C
     Dosage: UNK
     Dates: start: 20120814
  2. REBETOL [Suspect]
     Indication: HEPATITIS C
     Dosage: 6 pills daily
     Dates: start: 20120814
  3. REBETOL [Suspect]
     Dosage: 3 pills daily
     Route: 048
  4. VICTRELIS [Suspect]
     Indication: HEPATITIS C
     Dosage: UNK
     Route: 048
     Dates: start: 20120914

REACTIONS (8)
  - Crying [Unknown]
  - Red blood cell count decreased [Unknown]
  - Fatigue [Unknown]
  - Dysgeusia [Unknown]
  - Decreased appetite [Unknown]
  - Blood glucose decreased [Unknown]
  - Vomiting [Unknown]
  - Dyspnoea [Unknown]
